FAERS Safety Report 25995844 (Version 1)
Quarter: 2025Q4

REPORT INFORMATION
  Report Type: Other
  Country: EU (occurrence: EU)
  Receive Date: 20251104
  Receipt Date: 20251104
  Transmission Date: 20260118
  Serious: Yes (Disabling)
  Sender: MACLEODS
  Company Number: None

PATIENT

DRUGS (1)
  1. LEVOFLOXACIN [Suspect]
     Active Substance: LEVOFLOXACIN
     Indication: Bronchitis
     Route: 048
     Dates: start: 20250923, end: 20250927

REACTIONS (1)
  - Neuralgia [Recovered/Resolved with Sequelae]

NARRATIVE: CASE EVENT DATE: 20250928
